FAERS Safety Report 9990710 (Version 1)
Quarter: 2014Q1

REPORT INFORMATION
  Report Type: Report from Study
  Country: US (occurrence: US)
  Receive Date: 20140310
  Receipt Date: 20140310
  Transmission Date: 20141002
  Serious: No
  Sender: FDA-Public Use
  Company Number: US-ABBVIE-13P-163-1135242-00

PATIENT
  Sex: Female
  Weight: 88.08 kg

DRUGS (3)
  1. HUMIRA [Suspect]
     Indication: PRODUCT USED FOR UNKNOWN INDICATION
     Route: 058
  2. 50 PLUS [Concomitant]
     Indication: PRODUCT USED FOR UNKNOWN INDICATION
  3. ESTRA/NORETH [Concomitant]
     Indication: PRODUCT USED FOR UNKNOWN INDICATION
     Dosage: 0.5-0.1

REACTIONS (1)
  - Musculoskeletal stiffness [Unknown]
